FAERS Safety Report 8128697-3 (Version None)
Quarter: 2012Q1

REPORT INFORMATION
  Report Type: 
  Country: None (occurrence: None)
  Receive Date: 20120210
  Receipt Date: 20110104
  Transmission Date: 20120608
  Serious: No
  Sender: FDA-Public Use
  Company Number: US-BRISTOL-MYERS SQUIBB COMPANY-15470735

PATIENT
  Age: 82 Year
  Sex: Female

DRUGS (11)
  1. IRON [Concomitant]
     Dosage: INF URSELF BY HEMATOLOGY
  2. PREDNISONE TAB [Concomitant]
     Dates: start: 20101001
  3. VITAMIN D [Concomitant]
  4. RAMIPRIL [Concomitant]
  5. CALCITRIOL [Concomitant]
  6. ORENCIA [Suspect]
     Indication: RHEUMATOID ARTHRITIS
     Dosage: THERAPY DURATION:45MON-1HR INFUSION:10
     Route: 042
     Dates: start: 20100322, end: 20101115
  7. BONIVA [Concomitant]
     Dosage: 1 DF=3MG/3ML
     Dates: start: 20101004
  8. ZOCOR [Concomitant]
  9. GLIPIRIDE [Concomitant]
  10. LEVOTHYROXINE SODIUM [Concomitant]
  11. TYLENOL W/ CODEINE NO. 3 [Concomitant]

REACTIONS (1)
  - TINNITUS [None]
